FAERS Safety Report 16653068 (Version 2)
Quarter: 2019Q3

REPORT INFORMATION
  Report Type: Spontaneous
  Country: AU (occurrence: AU)
  Receive Date: 20190731
  Receipt Date: 20190830
  Transmission Date: 20191004
  Serious: Yes (Other)
  Sender: FDA-Public Use
  Company Number: AU-JNJFOC-20190727680

PATIENT
  Age: 40 Year
  Sex: Male

DRUGS (8)
  1. INVEGA SUSTENNA [Suspect]
     Active Substance: PALIPERIDONE PALMITATE
     Indication: PRODUCT USED FOR UNKNOWN INDICATION
     Route: 030
  2. CLOZAPINE. [Suspect]
     Active Substance: CLOZAPINE
     Indication: PRODUCT USED FOR UNKNOWN INDICATION
     Route: 065
     Dates: start: 20091118
  3. RAMIPRIL. [Suspect]
     Active Substance: RAMIPRIL
     Indication: HYPERTENSION
     Route: 065
  4. CLOZAPINE. [Suspect]
     Active Substance: CLOZAPINE
     Route: 065
     Dates: start: 20091118
  5. CLOZAPINE. [Suspect]
     Active Substance: CLOZAPINE
     Route: 065
  6. ATORVASTATIN [Suspect]
     Active Substance: ATORVASTATIN
     Indication: DYSLIPIDAEMIA
     Route: 065
  7. CLOPINE [Suspect]
     Active Substance: CLOZAPINE
     Indication: PRODUCT USED FOR UNKNOWN INDICATION
     Route: 065
     Dates: start: 20110929
  8. CLOPINE [Suspect]
     Active Substance: CLOZAPINE
     Route: 065

REACTIONS (11)
  - Left ventricular dysfunction [Unknown]
  - Inferior vena cava dilatation [Unknown]
  - Right atrial enlargement [Unknown]
  - Tricuspid valve incompetence [Unknown]
  - Pulmonary hypertension [Unknown]
  - Right ventricular enlargement [Unknown]
  - Aortic dilatation [Unknown]
  - Left ventricular enlargement [Unknown]
  - QRS axis abnormal [Unknown]
  - Aortic arteriosclerosis [Unknown]
  - Left atrial enlargement [Unknown]

NARRATIVE: CASE EVENT DATE: 20190109
